FAERS Safety Report 14674500 (Version 4)
Quarter: 2018Q2

REPORT INFORMATION
  Report Type: Spontaneous
  Country: JP (occurrence: JP)
  Receive Date: 20180323
  Receipt Date: 20180530
  Transmission Date: 20180711
  Serious: Yes (Death, Other)
  Sender: FDA-Public Use
  Company Number: JP-PFIZER INC-2017325096

PATIENT
  Age: 6 Decade
  Sex: Female

DRUGS (3)
  1. XALKORI [Suspect]
     Active Substance: CRIZOTINIB
     Dosage: 400 MG, DAILY
  2. XALKORI [Suspect]
     Active Substance: CRIZOTINIB
     Indication: LUNG NEOPLASM MALIGNANT
     Dosage: 500 MG, DAILY
     Dates: start: 20170718
  3. XALKORI [Suspect]
     Active Substance: CRIZOTINIB
     Dosage: 200 MG, DAILY

REACTIONS (15)
  - Cell marker increased [Recovered/Resolved]
  - Pleural effusion [Not Recovered/Not Resolved]
  - Visual impairment [Not Recovered/Not Resolved]
  - Oedema [Unknown]
  - Decreased appetite [Recovering/Resolving]
  - Vomiting [Unknown]
  - Diarrhoea [Unknown]
  - Visual perseveration [Not Recovered/Not Resolved]
  - Dysgeusia [Not Recovered/Not Resolved]
  - Intentional dose omission [Unknown]
  - Bradycardia [Unknown]
  - Mutism [Unknown]
  - Carcinoembryonic antigen increased [Not Recovered/Not Resolved]
  - Neoplasm progression [Fatal]
  - Eyelid ptosis [Unknown]

NARRATIVE: CASE EVENT DATE: 2017
